FAERS Safety Report 6177180-3 (Version None)
Quarter: 2009Q2

REPORT INFORMATION
  Report Type: 
  Country: None (occurrence: None)
  Receive Date: 20090504
  Receipt Date: 20090428
  Transmission Date: 20091009
  Serious: Yes (Hospitalization)
  Sender: FDA-Public Use
  Company Number: US-BRISTOL-MYERS SQUIBB COMPANY-14565816

PATIENT
  Age: 24 Year
  Sex: Male
  Weight: 68 kg

DRUGS (7)
  1. DASATINIB [Suspect]
     Indication: SARCOMA
     Route: 048
     Dates: start: 20090312, end: 20090325
  2. ATIVAN [Concomitant]
     Dates: start: 20090205, end: 20090325
  3. ALBUTEROL [Concomitant]
  4. DILAUDID [Concomitant]
  5. OXYCODONE [Concomitant]
     Dates: start: 20090226, end: 20090325
  6. OXYCONTIN [Concomitant]
     Dates: start: 20090226, end: 20090325
  7. PERCOCET [Concomitant]
     Dates: start: 20090226, end: 20090325

REACTIONS (3)
  - HAEMOGLOBIN DECREASED [None]
  - HYPOXIA [None]
  - MALIGNANT NEOPLASM PROGRESSION [None]
